FAERS Safety Report 11728538 (Version 1)
Quarter: 2015Q4

REPORT INFORMATION
  Report Type: Spontaneous
  Country: US (occurrence: None)
  Receive Date: 20151112
  Receipt Date: 20151112
  Transmission Date: 20160304
  Serious: No
  Sender: FDA-Public Use
  Company Number: None

PATIENT
  Age: 42 Year
  Sex: Female

DRUGS (3)
  1. RIBAVIRIN 200MG UNKNOWN [Suspect]
     Active Substance: RIBAVIRIN
     Indication: IRON OVERLOAD
     Dosage: 1000 MG, AM AND PM
     Route: 048
     Dates: start: 20150623
  2. SOVALDI [Suspect]
     Active Substance: SOFOSBUVIR
     Route: 048
     Dates: start: 20150623
  3. RIBAVIRIN 200MG UNKNOWN [Suspect]
     Active Substance: RIBAVIRIN
     Indication: TRANSFUSION RELATED COMPLICATION
     Dosage: 1000 MG, AM AND PM
     Route: 048
     Dates: start: 20150623

REACTIONS (4)
  - Viral infection [None]
  - Blood count abnormal [None]
  - Gastric disorder [None]
  - Hepatitis [None]
